FAERS Safety Report 5886491-8 (Version None)
Quarter: 2008Q3

REPORT INFORMATION
  Report Type: 
  Country: None (occurrence: None)
  Receive Date: 20080917
  Receipt Date: 20080909
  Transmission Date: 20090109
  Serious: Yes (Other)
  Sender: FDA-Public Use
  Company Number: JP-MERCK-0808USA05385

PATIENT
  Age: 13 Year
  Sex: Male

DRUGS (3)
  1. PEPCID RPD [Suspect]
     Indication: GASTRODUODENAL ULCER
     Route: 048
     Dates: start: 20080725, end: 20080801
  2. MESADORIN S [Concomitant]
     Indication: GASTRODUODENAL ULCER
     Route: 048
     Dates: start: 20080725
  3. ASCOMP [Concomitant]
     Indication: GASTRODUODENAL ULCER
     Route: 048
     Dates: start: 20080725

REACTIONS (1)
  - RHABDOMYOLYSIS [None]
